FAERS Safety Report 8144441-8 (Version None)
Quarter: 2012Q1

REPORT INFORMATION
  Report Type: 
  Country: None (occurrence: None)
  Receive Date: 20120214
  Receipt Date: 20120206
  Transmission Date: 20120608
  Serious: Yes (Death, Other)
  Sender: FDA-Public Use
  Company Number: 1187565

PATIENT
  Age: 69 Year
  Sex: Male
  Weight: 50 kg

DRUGS (10)
  1. DIPHENHYDRAMINE HCL [Concomitant]
  2. ONDANSETRON [Concomitant]
  3. OXYCODONE HCL [Concomitant]
  4. CARBOPLATIN [Suspect]
     Indication: SMALL CELL LUNG CANCER EXTENSIVE STAGE
     Dosage: 370 MG,INTRAVENOUS DRIP
     Route: 041
  5. ALLOPURINOL [Concomitant]
  6. DEXAMETHASONE [Concomitant]
  7. DOCUSATE [Concomitant]
  8. IPRATROPIUM BROMIDE [Concomitant]
  9. ASPIRIN [Concomitant]
  10. METOPROLOL [Concomitant]

REACTIONS (12)
  - BLOOD CREATINE PHOSPHOKINASE MB INCREASED [None]
  - CACHEXIA [None]
  - EJECTION FRACTION DECREASED [None]
  - TACHYCARDIA [None]
  - PNEUMONITIS [None]
  - ATRIAL FLUTTER [None]
  - WHITE BLOOD CELL COUNT DECREASED [None]
  - BLOOD SODIUM DECREASED [None]
  - DIZZINESS [None]
  - HYPOTENSION [None]
  - HYPERTENSIVE CRISIS [None]
  - ARRHYTHMIA [None]
